FAERS Safety Report 7626495-8 (Version None)
Quarter: 2011Q3

REPORT INFORMATION
  Report Type: 
  Country: None (occurrence: None)
  Receive Date: 20110721
  Receipt Date: 20110713
  Transmission Date: 20111222
  Serious: Yes (Hospitalization)
  Sender: FDA-Public Use
  Company Number: US-GLAXOSMITHKLINE-A0936672A

PATIENT
  Age: 82 Year
  Sex: Female

DRUGS (1)
  1. ARZERRA [Suspect]
     Indication: CHRONIC LYMPHOCYTIC LEUKAEMIA
     Dosage: 100MG PER DAY
     Route: 042
     Dates: start: 20110712

REACTIONS (3)
  - HAEMATOCRIT DECREASED [None]
  - DRUG ADMINISTRATION ERROR [None]
  - HAEMOGLOBIN DECREASED [None]
